FAERS Safety Report 23367851 (Version 1)
Quarter: 2024Q1

REPORT INFORMATION
  Report Type: Spontaneous
  Country: CN (occurrence: None)
  Receive Date: 20240104
  Receipt Date: 20240104
  Transmission Date: 20240410
  Serious: Yes (Other)
  Sender: FDA-Public Use
  Company Number: 2024A001506

PATIENT
  Age: 24992 Day
  Sex: Female
  Weight: 63 kg

DRUGS (2)
  1. TICAGRELOR [Suspect]
     Active Substance: TICAGRELOR
     Indication: Coronary artery disease
     Route: 048
     Dates: start: 20231219, end: 20231220
  2. TICAGRELOR [Suspect]
     Active Substance: TICAGRELOR
     Indication: Chest discomfort
     Route: 048
     Dates: start: 20231219, end: 20231220

REACTIONS (2)
  - Dyspepsia [Recovered/Resolved]
  - Nausea [Recovered/Resolved]

NARRATIVE: CASE EVENT DATE: 20231220
